FAERS Safety Report 8423598-5 (Version None)
Quarter: 2012Q2

REPORT INFORMATION
  Report Type: 
  Country: None (occurrence: None)
  Receive Date: 20120608
  Receipt Date: 20120601
  Transmission Date: 20120825
  Serious: Yes (Hospitalization)
  Sender: FDA-Public Use
  Company Number: FR-PFIZER INC-2012131891

PATIENT
  Age: 47 Year
  Sex: Male

DRUGS (3)
  1. ZITHROMAX [Suspect]
     Indication: PNEUMONIA
     Dosage: 250 MG, 1X/DAY
     Route: 048
     Dates: start: 20120403, end: 20120403
  2. ZITHROMAX [Suspect]
     Dosage: 500 MG, 1X/DAY
     Dates: start: 20120404, end: 20120401
  3. PIPERACILLIN/TAZOBACTAM [Suspect]
     Indication: PNEUMONIA
     Dosage: 1 DF, 3X/DAY
     Route: 041
     Dates: start: 20120403, end: 20120401

REACTIONS (3)
  - TRANSAMINASES INCREASED [None]
  - CONDITION AGGRAVATED [None]
  - CHOLESTASIS [None]
